FAERS Safety Report 9831013 (Version 1)
Quarter: 2014Q1

REPORT INFORMATION
  Report Type: Report from Study
  Country: CA (occurrence: CA)
  Receive Date: 20140120
  Receipt Date: 20140120
  Transmission Date: 20141002
  Serious: Yes (Death)
  Sender: FDA-Public Use
  Company Number: PHHY2014CA005962

PATIENT
  Age: 59 Year
  Sex: Male

DRUGS (2)
  1. SANDOSTATIN LAR (PATIENT BASIS) [Suspect]
     Indication: NEUROENDOCRINE TUMOUR
     Dosage: 20 MG ONCE A MONTH
     Route: 030
     Dates: start: 20120412
  2. AFINITOR [Suspect]
     Dosage: 10 MG QD
     Route: 048
     Dates: start: 201308

REACTIONS (1)
  - Death [Fatal]
